FAERS Safety Report 21666321 (Version 3)
Quarter: 2023Q1

REPORT INFORMATION
  Report Type: Report from Study
  Country: BR (occurrence: BR)
  Receive Date: 20221201
  Receipt Date: 20230322
  Transmission Date: 20230417
  Serious: Yes (Other)
  Sender: FDA-Public Use
  Company Number: BR-CELLTRION INC.-2022BR020159

PATIENT

DRUGS (4)
  1. INFLIXIMAB [Suspect]
     Active Substance: INFLIXIMAB
     Indication: Rheumatoid arthritis
     Dosage: 4 AMPOULES EVERY 2 MONTHS (STARTED 4 MONTHS AGO)
     Route: 042
  2. ROSUVASTATIN CALCIUM [Concomitant]
     Active Substance: ROSUVASTATIN CALCIUM
     Indication: Blood cholesterol
     Dosage: 1 PILL A DAY (10 YEARS AGO)
     Route: 048
  3. VITAMIN D [Concomitant]
     Active Substance: VITAMIN D NOS
     Indication: Supplementation therapy
     Dosage: 1 PILL A DAY (10 YEARS AGO)
     Route: 048
  4. ISOCORD [Concomitant]
     Indication: Blood cholesterol

REACTIONS (9)
  - Pelvic pain [Unknown]
  - Pain in extremity [Unknown]
  - Arthralgia [Unknown]
  - Eye irritation [Unknown]
  - Ulcer [Unknown]
  - Swelling [Unknown]
  - Therapeutic response unexpected [Unknown]
  - Treatment delayed [Unknown]
  - Product supply issue [Unknown]

NARRATIVE: CASE EVENT DATE: 20221121
